FAERS Safety Report 23230041 (Version 1)
Quarter: 2023Q4

REPORT INFORMATION
  Report Type: Spontaneous
  Country: US (occurrence: None)
  Receive Date: 20231123
  Receipt Date: 20231123
  Transmission Date: 20240110
  Serious: Yes (Hospitalization)
  Sender: FDA-Public Use
  Company Number: None

PATIENT
  Sex: Female
  Weight: 71.2 kg

DRUGS (4)
  1. FLUOROURACIL [Suspect]
     Active Substance: FLUOROURACIL
     Dates: end: 20231107
  2. CAMPTOSAR [Suspect]
     Active Substance: IRINOTECAN HYDROCHLORIDE
     Dates: end: 20231107
  3. LEUCOVORIN CALCIUM [Suspect]
     Dates: end: 20231107
  4. ELOXATIN [Suspect]
     Active Substance: OXALIPLATIN
     Dates: end: 20231107

REACTIONS (4)
  - Pancreatitis acute [None]
  - Hypophagia [None]
  - Pancreatic duct dilatation [None]
  - Colitis [None]

NARRATIVE: CASE EVENT DATE: 20231115
